FAERS Safety Report 17774130 (Version 1)
Quarter: 2020Q2

REPORT INFORMATION
  Report Type: Spontaneous
  Country: FR (occurrence: FR)
  Receive Date: 20200513
  Receipt Date: 20200513
  Transmission Date: 20200714
  Serious: Yes (Hospitalization)
  Sender: FDA-Public Use
  Company Number: FR-BAUSCH-BL-2020-013473

PATIENT
  Age: 74 Year
  Sex: Male
  Weight: 66 kg

DRUGS (5)
  1. ROVAMYCINE [Suspect]
     Active Substance: SPIRAMYCIN
     Indication: FEBRILE BONE MARROW APLASIA
     Route: 042
     Dates: start: 20200319, end: 20200322
  2. METRONIDAZOLE. [Suspect]
     Active Substance: METRONIDAZOLE
     Indication: FEBRILE BONE MARROW APLASIA
     Route: 042
     Dates: start: 20200312, end: 20200323
  3. CEFTAZIDIME. [Suspect]
     Active Substance: CEFTAZIDIME
     Indication: FEBRILE BONE MARROW APLASIA
     Route: 042
     Dates: start: 20200306, end: 20200330
  4. ACICLOVIR [Suspect]
     Active Substance: ACYCLOVIR
     Indication: FEBRILE BONE MARROW APLASIA
     Route: 042
     Dates: start: 20200313, end: 20200330
  5. CANCIDAS [Suspect]
     Active Substance: CASPOFUNGIN ACETATE
     Indication: FEBRILE BONE MARROW APLASIA
     Route: 042
     Dates: start: 20200314, end: 20200326

REACTIONS (1)
  - Coma [Recovered/Resolved]

NARRATIVE: CASE EVENT DATE: 20200321
